FAERS Safety Report 9179727 (Version 1)
Quarter: 2012Q4

REPORT INFORMATION
  Report Type: 
  Country: US (occurrence: US)
  Receive Date: 20121029
  Receipt Date: 20121029
  Transmission Date: 20130627
  Serious: No
  Sender: FDA-Public Use
  Company Number: US-MYLANLABS-2011S1021277

PATIENT
  Age: 69 Year
  Sex: Female
  Weight: 66.68 kg

DRUGS (12)
  1. WARFARIN SODIUM [Suspect]
     Indication: ATRIAL FIBRILLATION
     Route: 048
     Dates: start: 2006, end: 2007
  2. WARFARIN SODIUM [Suspect]
     Indication: ATRIAL FIBRILLATION
     Route: 048
     Dates: start: 2007
  3. TRIAMTERENE + HYDROCHLOROTHIAZIDE [Suspect]
     Indication: FLUID RETENTION
     Dates: start: 2006
  4. LANOXIN [Concomitant]
  5. ATENOLOL [Concomitant]
  6. VITAMIN D [Concomitant]
  7. L METHYLFOLATE [Concomitant]
  8. LORATADINE [Concomitant]
  9. MAGNESIUM [Concomitant]
  10. ARMOUR THYROID [Concomitant]
  11. VITAMIN B [Concomitant]
  12. ESTROGEN [Concomitant]
     Route: 061

REACTIONS (4)
  - Headache [Not Recovered/Not Resolved]
  - Sinus headache [Not Recovered/Not Resolved]
  - Paraesthesia [Not Recovered/Not Resolved]
  - Generalised oedema [Not Recovered/Not Resolved]
